FAERS Safety Report 4864459-8 (Version None)
Quarter: 2005Q4

REPORT INFORMATION
  Report Type: 
  Country: None (occurrence: None)
  Receive Date: 20051222
  Receipt Date: 20050203
  Transmission Date: 20060501
  Serious: Yes (Hospitalization)
  Sender: FDA-Public Use
  Company Number: CA-BRISTOL-MYERS SQUIBB COMPANY-12866661

PATIENT
  Age: 55 Year
  Sex: Male

DRUGS (2)
  1. MODECATE INJ [Suspect]
     Indication: SCHIZOPHRENIA
     Route: 030
  2. FLURAZEPAM [Concomitant]

REACTIONS (2)
  - HYPONATRAEMIA [None]
  - HYPOTHERMIA [None]
